FAERS Safety Report 8192311-1 (Version None)
Quarter: 2012Q1

REPORT INFORMATION
  Report Type: 
  Country: None (occurrence: None)
  Receive Date: 20120307
  Receipt Date: 20110711
  Transmission Date: 20120608
  Serious: Yes (Other)
  Sender: FDA-Public Use
  Company Number: PHHY2011NL64054

PATIENT
  Age: 43 Year
  Sex: Male

DRUGS (8)
  1. AZATHIOPRINE [Suspect]
     Indication: ERDHEIM-CHESTER DISEASE
     Route: 048
  2. CYCLOSPORINE [Suspect]
     Indication: ERDHEIM-CHESTER DISEASE
  3. POLYGAM S/D [Suspect]
     Indication: ERDHEIM-CHESTER DISEASE
  4. OCTREOTIDE ACETATE [Suspect]
     Indication: ERDHEIM-CHESTER DISEASE
  5. CYCLOPHOSPHAMIDE [Suspect]
     Indication: ERDHEIM-CHESTER DISEASE
  6. PREDNISONE [Suspect]
     Indication: ERDHEIM-CHESTER DISEASE
     Route: 048
  7. RADIOTHERAPY [Suspect]
     Indication: ERDHEIM-CHESTER DISEASE
  8. ETANERCEPT [Suspect]
     Indication: ERDHEIM-CHESTER DISEASE

REACTIONS (1)
  - HERPES VIRUS INFECTION [None]
